FAERS Safety Report 19813584 (Version 3)
Quarter: 2021Q3

REPORT INFORMATION
  Report Type: Spontaneous
  Country: FR (occurrence: FR)
  Receive Date: 20210909
  Receipt Date: 20210927
  Transmission Date: 20211014
  Serious: Yes (Death, Other)
  Sender: FDA-Public Use
  Company Number: FR-MYLANLABS-2021M1058804

PATIENT
  Age: 61 Year
  Sex: Male
  Weight: 111 kg

DRUGS (4)
  1. TELMISARTAN. [Suspect]
     Active Substance: TELMISARTAN
     Indication: HYPERTENSION
     Dosage: 1 DOSAGE FORM
     Route: 048
     Dates: start: 20190503
  2. TRAMADOL TEVA [Interacting]
     Active Substance: TRAMADOL
     Indication: MUSCLE RUPTURE
     Dosage: 1, Q6H, TOOK ONLY 3 DF
     Route: 065
     Dates: start: 20210120
  3. DAFALGAN [Suspect]
     Active Substance: ACETAMINOPHEN
     Indication: MUSCLE RUPTURE
     Dosage: 10000 MILLIGRAM
     Route: 065
  4. TRAMADOL TEVA [Interacting]
     Active Substance: TRAMADOL
     Indication: ARTHRALGIA

REACTIONS (22)
  - Diarrhoea [Fatal]
  - Cardiac arrest [Fatal]
  - Balance disorder [Fatal]
  - Coordination abnormal [Fatal]
  - Somnolence [Fatal]
  - Confusional state [Fatal]
  - Hypoaesthesia [Fatal]
  - Arthralgia [Fatal]
  - Dry mouth [Fatal]
  - Decreased appetite [Fatal]
  - Pulmonary embolism [Fatal]
  - Hyperhidrosis [Fatal]
  - Disorganised speech [Fatal]
  - Tremor [Fatal]
  - Hallucination [Fatal]
  - Drug interaction [Fatal]
  - Dizziness [Fatal]
  - Thirst [Fatal]
  - General physical health deterioration [Fatal]
  - Delirium [Fatal]
  - Fall [Fatal]
  - Abdominal distension [Fatal]

NARRATIVE: CASE EVENT DATE: 20210121
